FAERS Safety Report 7247198-8 (Version None)
Quarter: 2011Q1

REPORT INFORMATION
  Report Type: 
  Country: None (occurrence: None)
  Receive Date: 20110127
  Receipt Date: 20110119
  Transmission Date: 20110831
  Serious: Yes (Other)
  Sender: FDA-Public Use
  Company Number: US-JNJFOC-20110105333

PATIENT
  Sex: Male
  Weight: 72.58 kg

DRUGS (10)
  1. REMICADE [Suspect]
     Indication: CROHN'S DISEASE
     Route: 042
  2. PROBIOTIC [Concomitant]
     Indication: ABDOMINAL DISTENSION
     Route: 048
  3. REMICADE [Suspect]
     Route: 042
  4. DILANTIN [Concomitant]
     Indication: CONVULSION
     Dosage: ALTERNATING DOSE OF 400 MG AND 500 MG DAILY
     Route: 048
  5. PRILOSEC [Concomitant]
     Indication: ABDOMINAL DISTENSION
     Route: 048
  6. REMICADE [Suspect]
     Route: 042
  7. LAMICTAL [Concomitant]
     Indication: CONVULSION
     Route: 048
  8. REMICADE [Suspect]
     Route: 042
  9. PREDNISONE [Concomitant]
     Indication: CROHN'S DISEASE
     Dosage: 15 MG EVERY OTHER DAY
     Route: 048
  10. LEXAPRO [Concomitant]
     Indication: ANXIETY
     Route: 048

REACTIONS (6)
  - BACK PAIN [None]
  - ABDOMINAL ADHESIONS [None]
  - PRURITUS [None]
  - INFUSION RELATED REACTION [None]
  - DRUG INEFFECTIVE [None]
  - PAIN IN EXTREMITY [None]
